FAERS Safety Report 10472657 (Version 5)
Quarter: 2015Q1

REPORT INFORMATION
  Report Type: Report from Study
  Country: GR (occurrence: GR)
  Receive Date: 20140924
  Receipt Date: 20150330
  Transmission Date: 20150720
  Serious: Yes (Death, Life-Threatening, Hospitalization)
  Sender: FDA-Public Use
  Company Number: GR-PFIZER INC-2014260914

PATIENT
  Age: 78 Year
  Sex: Male

DRUGS (12)
  1. BEVACIZUMAB [Suspect]
     Active Substance: BEVACIZUMAB
     Dosage: 660 MG, 1 IN 2 WK
     Route: 042
     Dates: end: 20140525
  2. NORVASC [Concomitant]
     Active Substance: AMLODIPINE BESYLATE
     Dosage: 10 MG, UNK
     Dates: start: 20050101, end: 20140606
  3. T4 [Concomitant]
     Active Substance: LEVOTHYROXINE
     Indication: SECONDARY HYPOTHYROIDISM
     Dosage: 50 MG, UNK
     Dates: start: 20140101
  4. TAZOCIN [Suspect]
     Active Substance: PIPERACILLIN SODIUM\TAZOBACTAM SODIUM
     Dosage: 48 MUI
     Dates: start: 20140526, end: 20140530
  5. T4 [Concomitant]
     Active Substance: LEVOTHYROXINE
     Dosage: 50 MG, UNK
     Dates: end: 2014
  6. DIOVAN [Concomitant]
     Active Substance: VALSARTAN
     Dosage: 320 MG, UNK
     Dates: start: 20090101, end: 20140606
  7. T4 [Concomitant]
     Active Substance: LEVOTHYROXINE
     Dosage: 50 MG, UNK
     Dates: start: 20140120
  8. BRIKLIN [Suspect]
     Active Substance: AMIKACIN
     Dosage: 500 MG
     Dates: start: 20140526, end: 20140530
  9. KEPPRA [Concomitant]
     Active Substance: LEVETIRACETAM
     Dosage: 500 MG, UNK
     Dates: start: 20140120, end: 20140606
  10. BEVACIZUMAB [Suspect]
     Active Substance: BEVACIZUMAB
     Indication: GLIOBLASTOMA
     Dosage: 660 MG, 1 IN 2 WK
     Route: 042
     Dates: start: 20140411
  11. TEMOZOLOMIDE. [Suspect]
     Active Substance: TEMOZOLOMIDE
     Indication: GLIOBLASTOMA
     Dosage: 875 MG, 1X/DAY 5 DAYS A WEEK
     Route: 048
     Dates: start: 20140411, end: 2014
  12. T4 [Concomitant]
     Active Substance: LEVOTHYROXINE
     Dosage: 100 MG, DAILY
     Dates: start: 20140513, end: 20140526

REACTIONS (3)
  - Stomatitis [Not Recovered/Not Resolved]
  - Secondary hypothyroidism [Fatal]
  - Depression [Not Recovered/Not Resolved]

NARRATIVE: CASE EVENT DATE: 20140512
